FAERS Safety Report 10022258 (Version 1)
Quarter: 2014Q1

REPORT INFORMATION
  Report Type: Spontaneous
  Country: BR (occurrence: BR)
  Receive Date: 20140319
  Receipt Date: 20140319
  Transmission Date: 20141002
  Serious: Yes (Hospitalization)
  Sender: FDA-Public Use
  Company Number: BR-ASTRAZENECA-2014SE17959

PATIENT
  Age: 1007 Month
  Sex: Female
  Weight: 70 kg

DRUGS (7)
  1. ATACAND HCT [Suspect]
     Indication: HYPERTENSION
     Dosage: EVERY MORNING
     Route: 048
     Dates: start: 2008
  2. ATENOLOL [Suspect]
     Indication: HYPERTENSION
     Route: 048
     Dates: start: 201402
  3. RAPID INSULIN [Concomitant]
     Indication: DIABETES MELLITUS
     Dosage: DAILY
     Route: 058
  4. SLOW INSULIN [Concomitant]
     Indication: DIABETES MELLITUS
     Dosage: DAILY
     Route: 058
  5. CITONEURIN [Concomitant]
     Indication: VITAMIN D ABNORMAL
     Dosage: 5000, DAILY
     Route: 048
  6. CITICOLINE [Concomitant]
     Indication: CEREBROVASCULAR ACCIDENT
     Dosage: DAILY
     Route: 048
     Dates: start: 201304
  7. GALVUS [Concomitant]
     Indication: DIABETES MELLITUS
     Route: 048

REACTIONS (4)
  - Cerebrovascular accident [Recovered/Resolved with Sequelae]
  - Speech disorder [Not Recovered/Not Resolved]
  - Pain in extremity [Not Recovered/Not Resolved]
  - Pain [Not Recovered/Not Resolved]
